FAERS Safety Report 16770673 (Version 1)
Quarter: 2019Q3

REPORT INFORMATION
  Report Type: Spontaneous
  Country: US (occurrence: US)
  Receive Date: 20190904
  Receipt Date: 20190904
  Transmission Date: 20191005
  Serious: Yes (Hospitalization, Other)
  Sender: FDA-Public Use
  Company Number: PHEH2019US036132

PATIENT

DRUGS (1)
  1. KISQALI [Suspect]
     Active Substance: RIBOCICLIB
     Indication: BREAST CANCER METASTATIC
     Dosage: 600 MG, QD
     Route: 048

REACTIONS (5)
  - Tumour lysis syndrome [Recovering/Resolving]
  - Renal failure [Recovering/Resolving]
  - Cardiac arrest [Recovered/Resolved]
  - Pathological fracture [Unknown]
  - Coronary artery disease [Recovering/Resolving]
